FAERS Safety Report 5084068-8 (Version None)
Quarter: 2006Q3

REPORT INFORMATION
  Report Type: 
  Country: None (occurrence: None)
  Receive Date: 20060821
  Receipt Date: 20060808
  Transmission Date: 20061208
  Serious: Yes (Hospitalization)
  Sender: FDA-Public Use
  Company Number: DE-JNJFOC-20060802083

PATIENT
  Age: 65 Year
  Sex: Female
  Weight: 79 kg

DRUGS (3)
  1. REMICADE [Suspect]
     Route: 042
  2. REMICADE [Suspect]
     Indication: PSORIASIS
     Route: 042
  3. LORSOTHAN [Concomitant]
     Indication: HYPERTENSION
     Route: 048

REACTIONS (4)
  - INFECTION [None]
  - OEDEMA PERIPHERAL [None]
  - ORAL CANDIDIASIS [None]
  - PSORIASIS [None]
